FAERS Safety Report 22091684 (Version 2)
Quarter: 2023Q1

REPORT INFORMATION
  Report Type: Other
  Country: US (occurrence: None)
  Receive Date: 20230314
  Receipt Date: 20230321
  Transmission Date: 20230418
  Serious: Yes (Other)
  Sender: FDA-Public Use
  Company Number: US-ROCHE-3304787

PATIENT
  Age: 47 Year
  Sex: Female
  Weight: 70.824 kg

DRUGS (1)
  1. OCREVUS [Suspect]
     Active Substance: OCRELIZUMAB
     Indication: Relapsing-remitting multiple sclerosis
     Dosage: YES; DATE OF TREATMENT: 24/FEB/2023, 26/AUG/2022, 08/FEB/2022, 22/FEB/2022
     Route: 042
     Dates: start: 20220208

REACTIONS (4)
  - Pneumonia [Not Recovered/Not Resolved]
  - Urinary tract infection [Recovered/Resolved]
  - Neck pain [Unknown]
  - Influenza [Unknown]

NARRATIVE: CASE EVENT DATE: 20221001
